FAERS Safety Report 6089012-2 (Version None)
Quarter: 2009Q1

REPORT INFORMATION
  Report Type: 
  Country: None (occurrence: None)
  Receive Date: 20090224
  Receipt Date: 20090220
  Transmission Date: 20090719
  Serious: Yes (Hospitalization)
  Sender: FDA-Public Use
  Company Number: A0713035A

PATIENT
  Age: 79 Year
  Sex: Male
  Weight: 84.1 kg

DRUGS (6)
  1. AVANDIA [Suspect]
     Route: 048
  2. OXYBUTYNIN CHLORIDE [Concomitant]
  3. QUININE SULFATE [Concomitant]
  4. COUMADIN [Concomitant]
  5. ASPIRIN [Concomitant]
  6. DETROL [Concomitant]

REACTIONS (3)
  - ATRIOVENTRICULAR BLOCK COMPLETE [None]
  - BRADYCARDIA [None]
  - MYOCARDIAL INFARCTION [None]
